FAERS Safety Report 26112319 (Version 1)
Quarter: 2025Q4

REPORT INFORMATION
  Report Type: Spontaneous
  Country: US (occurrence: None)
  Receive Date: 20251128
  Receipt Date: 20251128
  Transmission Date: 20260118
  Serious: Yes (Hospitalization)
  Sender: FDA-CTU
  Company Number: None

PATIENT
  Sex: Female

DRUGS (1)
  1. WINREVAIR [Suspect]
     Active Substance: SOTATERCEPT-CSRK
     Indication: Pulmonary arterial hypertension
     Dosage: 0.8 ML EVERY 3 WEEKS SUBCUTANEOUS ?
     Route: 058
     Dates: start: 20250818

REACTIONS (4)
  - Dizziness [None]
  - Flushing [None]
  - Respiratory rate increased [None]
  - Therapy change [None]
